FAERS Safety Report 22286178 (Version 4)
Quarter: 2023Q2

REPORT INFORMATION
  Report Type: Spontaneous
  Country: CA (occurrence: CA)
  Receive Date: 20230505
  Receipt Date: 20230628
  Transmission Date: 20230722
  Serious: Yes (Other)
  Sender: FDA-Public Use
  Company Number: CA-CELLTRION INC.-2023CA009384

PATIENT

DRUGS (5)
  1. INFLECTRA [Suspect]
     Active Substance: INFLIXIMAB-DYYB
     Indication: Colitis ulcerative
     Dosage: 900 MG, EVERY 4 WEEKS,DISCONTINUED
     Route: 042
     Dates: start: 20210309, end: 20230329
  2. PREDNISONE [Concomitant]
     Active Substance: PREDNISONE
  3. METHADONE HYDROCHLORIDE [Concomitant]
     Active Substance: METHADONE HYDROCHLORIDE
     Dosage: UNK UNK, DAILY
  4. TESTOSTERONE [Concomitant]
     Active Substance: TESTOSTERONE
     Dosage: SHOTS EVERY 2 WEEKS
  5. TESTOSTERONE [Concomitant]
     Active Substance: TESTOSTERONE
     Dosage: SHOTS EVERY 2 WEEKS

REACTIONS (2)
  - Condition aggravated [Not Recovered/Not Resolved]
  - Off label use [Unknown]

NARRATIVE: CASE EVENT DATE: 20210309
